FAERS Safety Report 15906647 (Version 3)
Quarter: 2019Q1

REPORT INFORMATION
  Report Type: Spontaneous
  Country: US (occurrence: US)
  Receive Date: 20190204
  Receipt Date: 20190212
  Transmission Date: 20190417
  Serious: Yes (Other)
  Sender: FDA-Public Use
  Company Number: US-SA-2019SA027679

PATIENT
  Sex: Male

DRUGS (1)
  1. BISACODYL. [Suspect]
     Active Substance: BISACODYL

REACTIONS (2)
  - Drug dependence [Unknown]
  - Product packaging quantity issue [Unknown]
